FAERS Safety Report 9281680 (Version 1)
Quarter: 2013Q2

REPORT INFORMATION
  Report Type: Spontaneous
  Country: US (occurrence: US)
  Receive Date: 20130509
  Receipt Date: 20130509
  Transmission Date: 20140414
  Serious: No
  Sender: FDA-Public Use
  Company Number: US-009507513-1305USA002555

PATIENT
  Age: 37 Year
  Sex: Male

DRUGS (2)
  1. AZASITE [Suspect]
     Indication: BLEPHARITIS
     Dosage: ONE DROP OF IN EACH EYE ONCE
     Route: 047
     Dates: start: 20130502, end: 20130502
  2. AMBIEN [Concomitant]

REACTIONS (5)
  - Eye irritation [Not Recovered/Not Resolved]
  - Eye pain [Unknown]
  - Vision blurred [Unknown]
  - Expired drug administered [Unknown]
  - Incorrect storage of drug [Unknown]
